FAERS Safety Report 7130329-8 (Version None)
Quarter: 2010Q4

REPORT INFORMATION
  Report Type: 
  Country: None (occurrence: None)
  Receive Date: 20101101
  Receipt Date: 20100831
  Transmission Date: 20110411
  Serious: Yes (Other)
  Sender: FDA-Public Use
  Company Number: AMAG201000341

PATIENT
  Age: 64 Year
  Sex: Female
  Weight: 80.3 kg

DRUGS (2)
  1. FERAHEME [Suspect]
     Indication: IRON DEFICIENCY ANAEMIA
     Dosage: 2 ML (60 MG), SINGLE, INTRAVENOUS
     Route: 042
     Dates: start: 20100831, end: 20100831
  2. BENADRYL [Concomitant]

REACTIONS (6)
  - COUGH [None]
  - HYPERSENSITIVITY [None]
  - HYPOTENSION [None]
  - OXYGEN SATURATION DECREASED [None]
  - PHARYNGEAL OEDEMA [None]
  - THROAT IRRITATION [None]
